FAERS Safety Report 8257574-2 (Version None)
Quarter: 2012Q2

REPORT INFORMATION
  Report Type: 
  Country: None (occurrence: None)
  Receive Date: 20120403
  Receipt Date: 20120323
  Transmission Date: 20120825
  Serious: Yes (Other)
  Sender: FDA-Public Use
  Company Number: IT-MILLENNIUM PHARMACEUTICALS, INC.-2012-02153

PATIENT

DRUGS (5)
  1. PREDNISONE TAB [Suspect]
     Indication: MULTIPLE MYELOMA
     Dosage: 96 MG, UNK
     Route: 048
     Dates: start: 20071026, end: 20080815
  2. THALIDOMIDE [Suspect]
     Indication: MULTIPLE MYELOMA
     Dosage: 50 MG, UNK
     Route: 048
     Dates: start: 20071026, end: 20090721
  3. VELCADE [Suspect]
     Indication: MULTIPLE MYELOMA
     Dosage: 2.08 MG, UNK
     Route: 042
     Dates: start: 20071026
  4. VELCADE [Suspect]
     Dosage: 1.12 MG, UNK
     Route: 042
     Dates: start: 20101123, end: 20101123
  5. MELPHALAN HYDROCHLORIDE [Suspect]
     Indication: MULTIPLE MYELOMA
     Dosage: 14.4 MG, UNK
     Route: 048
     Dates: start: 20071026, end: 20080815

REACTIONS (1)
  - MASTOCYTOSIS [None]
